FAERS Safety Report 20495730 (Version 1)
Quarter: 2022Q1

REPORT INFORMATION
  Report Type: Spontaneous
  Country: GB (occurrence: GB)
  Receive Date: 20220221
  Receipt Date: 20220221
  Transmission Date: 20220423
  Serious: Yes (Life-Threatening, Hospitalization)
  Sender: FDA-Public Use
  Company Number: GB-MACLEODS PHARMACEUTICALS US LTD-MAC2022034462

PATIENT

DRUGS (1)
  1. OLANZAPINE [Suspect]
     Active Substance: OLANZAPINE
     Indication: Mania
     Dosage: 10 MILLIGRAM, QD, EVERY NIGHT
     Route: 065

REACTIONS (4)
  - Diabetes mellitus [Unknown]
  - Multiple organ dysfunction syndrome [Unknown]
  - Haemodynamic instability [Recovered/Resolved]
  - Diabetic ketoacidosis [Unknown]
